FAERS Safety Report 7615832-6 (Version None)
Quarter: 2011Q3

REPORT INFORMATION
  Report Type: 
  Country: None (occurrence: None)
  Receive Date: 20110718
  Receipt Date: 20110718
  Transmission Date: 20111222
  Serious: Yes (Hospitalization)
  Sender: FDA-Public Use
  Company Number: None

PATIENT
  Sex: Female
  Weight: 83.7794 kg

DRUGS (15)
  1. ATIVAN [Concomitant]
  2. AMBIEN CR [Concomitant]
  3. LASIX [Concomitant]
  4. PEPCID [Concomitant]
  5. RAD001 [Suspect]
     Indication: BREAST CANCER
     Dosage: 5MG PO DAILY
     Route: 048
     Dates: start: 20110526, end: 20110605
  6. PACLITAXEL [Suspect]
     Indication: BREAST CANCER
     Dosage: 80MG/M2 IV
     Route: 042
     Dates: start: 20110601
  7. BAYER ASA [Concomitant]
  8. ONE A DAY VITAMIN [Concomitant]
  9. DARVOCET [Concomitant]
  10. ONDANSERTRON HCL (ZOFRAN) [Concomitant]
  11. LEVOXYL [Concomitant]
  12. POTASSIUM CHLORIDE ER, PARTICLES/CRYSTALS (KLOR-CO M20) [Concomitant]
  13. ANZEMET [Concomitant]
  14. CISPLATIN [Suspect]
     Indication: BREAST CANCER
     Dosage: 25MG/M2 IV
     Route: 042
     Dates: start: 20110525
  15. PROMETHAZINE [Concomitant]

REACTIONS (4)
  - NEUTROPENIA [None]
  - WHITE BLOOD CELL COUNT DECREASED [None]
  - PLATELET COUNT DECREASED [None]
  - NEUTROPHIL COUNT DECREASED [None]
